FAERS Safety Report 17756050 (Version 1)
Quarter: 2020Q2

REPORT INFORMATION
  Report Type: Spontaneous
  Country: FR (occurrence: FR)
  Receive Date: 20200507
  Receipt Date: 20200507
  Transmission Date: 20200714
  Serious: Yes (Hospitalization)
  Sender: FDA-Public Use
  Company Number: FR-PFIZER INC-2020181695

PATIENT
  Age: 62 Year
  Sex: Female

DRUGS (6)
  1. PREGABALIN. [Suspect]
     Active Substance: PREGABALIN
     Dosage: 400 MG, DAILY
     Route: 048
     Dates: start: 202002
  2. TERALITHE [Concomitant]
     Active Substance: LITHIUM CARBONATE
     Dosage: 1 DF, 1X/DAY
     Route: 048
  3. LEVOTHYROX [Concomitant]
     Active Substance: LEVOTHYROXINE
     Dosage: 1 DF, 1X/DAY
     Route: 048
  4. SERTRALINE HCL [Suspect]
     Active Substance: SERTRALINE HYDROCHLORIDE
     Dosage: 150 MG, 1X/DAY, IN THE EVENING
     Route: 048
     Dates: start: 202002
  5. THERALENE [Suspect]
     Active Substance: TRIMEPRAZINE
     Dosage: 50 DROP, 1X/DAY
     Route: 048
     Dates: start: 202002
  6. MIRTAZAPINE. [Suspect]
     Active Substance: MIRTAZAPINE
     Dosage: 15 MG/KG, 1X/DAY
     Route: 048
     Dates: start: 202002

REACTIONS (2)
  - Cerebellar syndrome [Recovering/Resolving]
  - Dysarthria [Recovering/Resolving]

NARRATIVE: CASE EVENT DATE: 20200306
